FAERS Safety Report 7790272-8 (Version None)
Quarter: 2011Q3

REPORT INFORMATION
  Report Type: 
  Country: None (occurrence: None)
  Receive Date: 20110930
  Receipt Date: 20110923
  Transmission Date: 20111222
  Serious: Yes (Other)
  Sender: FDA-Public Use
  Company Number: PHHY2011GB84769

PATIENT
  Age: 68 Year
  Sex: Female
  Weight: 100 kg

DRUGS (11)
  1. FLOXACILLIN SODIUM [Concomitant]
     Dosage: 500 MG, QD
     Route: 048
  2. FOLIC ACID [Concomitant]
     Dosage: 5 MG, QD
     Route: 048
  3. VENLAFAXINE HYDROCHLORIDE [Concomitant]
     Dosage: 112.5 MG, QD
     Route: 048
  4. LANSOPRAZOLE [Concomitant]
     Indication: DYSPEPSIA
     Dosage: 30 MG, QD
     Route: 048
  5. OLMESARTAN MEDOXOMIL [Concomitant]
     Dosage: 20 MG, QD
     Route: 048
  6. CEFTRIAXONE [Suspect]
     Indication: CELLULITIS
     Dosage: 2 G, UNK
     Route: 042
     Dates: start: 20110909, end: 20110909
  7. BUPRENORPHINE [Concomitant]
     Dosage: 20 MG, QW
  8. METHOTREXATE [Concomitant]
     Indication: RHEUMATOID ARTHRITIS
     Dosage: 20 MG, QW
     Route: 058
  9. DOXAZOSIN MESYLATE [Concomitant]
     Indication: HYPERTENSION
     Dosage: 4 MG, QD
     Route: 048
  10. PENICILLIN V [Concomitant]
     Dosage: 250 MG, QID
     Route: 048
  11. VENLAFAXINE HYDROCHLORIDE [Concomitant]
     Dosage: 75 MG, QD
     Route: 048

REACTIONS (2)
  - PAIN IN JAW [None]
  - CHEST PAIN [None]
